FAERS Safety Report 10243700 (Version 1)
Quarter: 2014Q2

REPORT INFORMATION
  Report Type: Spontaneous
  Country: GB (occurrence: GB)
  Receive Date: 20140618
  Receipt Date: 20140618
  Transmission Date: 20141212
  Serious: Yes (Other)
  Sender: FDA-Public Use
  Company Number: GB-SUN PHARMACEUTICAL INDUSTRIES LTD-2014SUN01304

PATIENT
  Age: 48 Year
  Sex: Female

DRUGS (2)
  1. CARBOPLATIN [Suspect]
     Indication: OVARIAN CANCER STAGE III
     Dosage: 6 AUC (TOTAL DOSE 740 MG)
     Route: 065
  2. PACLITAXEL [Concomitant]
     Indication: OVARIAN CANCER STAGE III
     Dosage: 80 MG/M2 (TOTAL DOSE 150 MG)
     Route: 065

REACTIONS (3)
  - Papilloedema [Unknown]
  - Thrombocytopenia [Unknown]
  - Neutropenia [Unknown]
